FAERS Safety Report 7006996-6 (Version None)
Quarter: 2010Q3

REPORT INFORMATION
  Report Type: 
  Country: None (occurrence: None)
  Receive Date: 20100915
  Receipt Date: 20100907
  Transmission Date: 20110219
  Serious: Yes (Life-Threatening, Hospitalization)
  Sender: FDA-Public Use
  Company Number: 2010SP047921

PATIENT
  Age: 59 Year
  Sex: Female
  Weight: 77.1115 kg

DRUGS (4)
  1. INTEGRILIN [Suspect]
     Indication: STENT PLACEMENT
     Dates: start: 20100802, end: 20100802
  2. HEPARIN [Suspect]
     Indication: STENT PLACEMENT
  3. ASPIRIN [Suspect]
     Indication: STENT PLACEMENT
  4. PLAVIX [Suspect]
     Indication: STENT PLACEMENT

REACTIONS (4)
  - CARDIAC TAMPONADE [None]
  - GASTRIC HAEMORRHAGE [None]
  - HAEMODYNAMIC INSTABILITY [None]
  - RENAL HAEMORRHAGE [None]
